FAERS Safety Report 14433062 (Version 1)
Quarter: 2018Q1

REPORT INFORMATION
  Report Type: Spontaneous
  Country: US (occurrence: US)
  Receive Date: 20180124
  Receipt Date: 20180124
  Transmission Date: 20180509
  Serious: Yes (Hospitalization)
  Sender: FDA-Public Use
  Company Number: US-PIRAMAL CRITICAL CARE LIMITED-2017-PEL-000795

PATIENT

DRUGS (1)
  1. GABLOFEN [Suspect]
     Active Substance: BACLOFEN
     Dosage: 280 ?G, QD
     Route: 037

REACTIONS (2)
  - Medical device site infection [Unknown]
  - Medical device site erythema [Unknown]
